FAERS Safety Report 8634368 (Version 4)
Quarter: 2012Q4

REPORT INFORMATION
  Report Type: 
  Country: US (occurrence: US)
  Receive Date: 20120626
  Receipt Date: 20120914
  Transmission Date: 20130627
  Serious: Yes (Other)
  Sender: FDA-Public Use
  Company Number: US-ASTELLAS-2012US005555

PATIENT
  Age: 79 None
  Sex: Female
  Weight: 77 kg

DRUGS (9)
  1. VESICARE [Suspect]
     Indication: HYPERTONIC BLADDER
     Dosage: 1 DF, UID/QD
     Route: 048
     Dates: start: 2012, end: 201207
  2. VESICARE [Suspect]
     Indication: INCONTINENCE
  3. DETROL LA [Suspect]
     Indication: INCONTINENCE
     Dosage: UNK
     Route: 065
     Dates: start: 2010
  4. SYNTHROID [Concomitant]
     Indication: HYPOTHYROIDISM
     Dosage: 137 ug, UID/QD
     Route: 065
  5. ONE A DAY                          /02262701/ [Concomitant]
     Indication: PRODUCT USED FOR UNKNOWN INDICATION
     Dosage: UNK
     Route: 065
  6. CALCIUM + VIT D [Concomitant]
     Indication: PRODUCT USED FOR UNKNOWN INDICATION
     Dosage: UNK
     Route: 065
  7. ADVIL /00109201/ [Concomitant]
     Indication: ARTHRALGIA
     Dosage: UNK, 2 tablets daily in the morning
     Route: 048
  8. ADVIL /00109201/ [Concomitant]
     Indication: ARTHRITIS
  9. FISH OIL [Concomitant]
     Indication: BLOOD CHOLESTEROL
     Dosage: UNK
     Route: 065

REACTIONS (9)
  - Dysarthria [Recovered/Resolved]
  - Balance disorder [Recovered/Resolved]
  - Dyspnoea [Recovered/Resolved]
  - Mental impairment [Recovered/Resolved]
  - Vision blurred [Recovered/Resolved]
  - Dyspepsia [Recovered/Resolved]
  - Dizziness [Recovered/Resolved]
  - Constipation [Recovered/Resolved]
  - Dry mouth [Recovered/Resolved]
